FAERS Safety Report 19828703 (Version 1)
Quarter: 2021Q3

REPORT INFORMATION
  Report Type: Spontaneous
  Country: GB (occurrence: GB)
  Receive Date: 20210914
  Receipt Date: 20210914
  Transmission Date: 20211014
  Serious: Yes (Disabling, Other)
  Sender: FDA-Public Use
  Company Number: GB-PFIZER INC-202101138309

PATIENT
  Age: 36 Year
  Sex: Male
  Weight: 92.07 kg

DRUGS (3)
  1. HYDROCORTISONE ACETATE. [Suspect]
     Active Substance: HYDROCORTISONE ACETATE
     Indication: APPLICATION SITE DRYNESS
     Dosage: 1 DF, AS NEEDED (ONE DOSE AS PER INSTRUCTIONS)
     Route: 061
     Dates: start: 20200310, end: 20200310
  2. FLIXONASE [Concomitant]
     Active Substance: FLUTICASONE PROPIONATE
     Dosage: UNK
  3. FOSTAIR [Concomitant]
     Active Substance: BECLOMETHASONE\FORMOTEROL
     Dosage: UNK

REACTIONS (9)
  - Application site erythema [Unknown]
  - Skin fissures [Unknown]
  - Application site pain [Unknown]
  - Lichen sclerosus [Unknown]
  - Application site nerve damage [Not Recovered/Not Resolved]
  - Off label use [Unknown]
  - Application site scar [Unknown]
  - Erectile dysfunction [Not Recovered/Not Resolved]
  - Skin injury [Not Recovered/Not Resolved]

NARRATIVE: CASE EVENT DATE: 20200310
